FAERS Safety Report 12453811 (Version 1)
Quarter: 2016Q2

REPORT INFORMATION
  Report Type: Spontaneous
  Country: DE (occurrence: DE)
  Receive Date: 20160609
  Receipt Date: 20160609
  Transmission Date: 20160815
  Serious: Yes (Hospitalization)
  Sender: FDA-Public Use
  Company Number: DE-ASTRAZENECA-2016SE60564

PATIENT
  Sex: Female

DRUGS (11)
  1. LYRICA [Concomitant]
     Active Substance: PREGABALIN
     Route: 048
     Dates: start: 201410, end: 201501
  2. VOCADO [Concomitant]
     Active Substance: AMLODIPINE BESYLATE\OLMESARTAN MEDOXOMIL
     Dosage: 40/12.5/5 MG
     Route: 048
     Dates: start: 201410
  3. SEROQUEL [Suspect]
     Active Substance: QUETIAPINE FUMARATE
     Route: 048
     Dates: start: 201410, end: 201501
  4. SEROQUEL [Suspect]
     Active Substance: QUETIAPINE FUMARATE
     Route: 048
     Dates: start: 201502, end: 20150514
  5. LYRICA [Concomitant]
     Active Substance: PREGABALIN
     Route: 048
     Dates: start: 201502
  6. DIPIPERON [Concomitant]
     Active Substance: PIPAMPERONE
     Route: 048
     Dates: start: 201410, end: 20150514
  7. AMISULPRID [Suspect]
     Active Substance: AMISULPRIDE
     Route: 048
     Dates: start: 20150505, end: 20150512
  8. AMISULPRID [Suspect]
     Active Substance: AMISULPRIDE
     Route: 048
     Dates: start: 20150626, end: 20150709
  9. PANTOZOL [Concomitant]
     Active Substance: PANTOPRAZOLE SODIUM
     Route: 048
  10. AMLODIPIN [Concomitant]
     Active Substance: AMLODIPINE BESYLATE
     Route: 048
     Dates: start: 201410
  11. NEPRESOL [Concomitant]
     Active Substance: DIHYDRALAZINE SULFATE
     Dates: start: 20150512

REACTIONS (1)
  - Liver function test abnormal [Recovered/Resolved]

NARRATIVE: CASE EVENT DATE: 20150511
